FAERS Safety Report 20242137 (Version 1)
Quarter: 2021Q4

REPORT INFORMATION
  Report Type: Spontaneous
  Country: US (occurrence: US)
  Receive Date: 20211228
  Receipt Date: 20211228
  Transmission Date: 20220304
  Serious: No
  Sender: FDA-Public Use
  Company Number: US-COOPERSURGICAL, INC.-US-2021CPS000542

PATIENT
  Age: 21 Year
  Sex: Female
  Weight: 65.306 kg

DRUGS (4)
  1. PARAGARD T 380A [Suspect]
     Active Substance: COPPER
     Indication: Contraception
     Dosage: UNK
     Route: 015
     Dates: start: 20210209, end: 20210211
  2. LIDOCAINE [Concomitant]
     Active Substance: LIDOCAINE
     Indication: Vulvovaginal pain
     Dosage: UNK
     Route: 065
  3. ACETAMINOPHEN [Concomitant]
     Active Substance: ACETAMINOPHEN
     Indication: Product used for unknown indication
     Dosage: AS NEEDED
     Route: 065
  4. ESTROGENS [Concomitant]
     Active Substance: ESTROGENS
     Indication: Vulvovaginal pain
     Dosage: UNK
     Route: 065

REACTIONS (6)
  - Vulvovaginal pain [Recovered/Resolved]
  - Infection [Unknown]
  - Uterine pain [Unknown]
  - White blood cell count decreased [Unknown]
  - Device expulsion [Recovered/Resolved]
  - Abdominal pain lower [Unknown]

NARRATIVE: CASE EVENT DATE: 20210201
